FAERS Safety Report 5310177-1 (Version None)
Quarter: 2007Q2

REPORT INFORMATION
  Report Type: 
  Country: None (occurrence: None)
  Receive Date: 20070423
  Receipt Date: 20070412
  Transmission Date: 20071010
  Serious: Yes (Life-Threatening, Hospitalization, Other)
  Sender: FDA-Public Use
  Company Number: MEDI-0005149

PATIENT
  Age: 68 Year
  Sex: Male

DRUGS (6)
  1. ETHYOL [Suspect]
     Indication: PROPHYLAXIS
     Dosage: 340 MG, 3 IN 1 WK, INTRAVENOUS
     Route: 042
     Dates: start: 20060928, end: 20061106
  2. ETHYOL [Suspect]
     Indication: RADIOTHERAPY
     Dosage: 340 MG, 3 IN 1 WK, INTRAVENOUS
     Route: 042
     Dates: start: 20060928, end: 20061106
  3. CITALOPRAM HYDROBROMIDE [Concomitant]
  4. LORAZEPAM [Concomitant]
  5. ZALDIAR (PARACETAMOL, TRAMADOL HYDROCHLORIDE) [Concomitant]
  6. ACETAMINOPHEN [Concomitant]

REACTIONS (47)
  - ADHESION [None]
  - AGRANULOCYTOSIS [None]
  - BLOOD CULTURE POSITIVE [None]
  - BRONCHIAL INJURY [None]
  - BRONCHIAL OBSTRUCTION [None]
  - CARDIAC FAILURE [None]
  - CATHETER RELATED INFECTION [None]
  - CONJUNCTIVAL OEDEMA [None]
  - CORNEAL DISORDER [None]
  - CORNEAL TRANSPLANT [None]
  - DERMATITIS EXFOLIATIVE [None]
  - DISTURBANCE IN ATTENTION [None]
  - DYSPHAGIA [None]
  - EAR INFECTION [None]
  - EYELID DISORDER [None]
  - GENERAL PHYSICAL HEALTH DETERIORATION [None]
  - HAEMOGLOBIN DECREASED [None]
  - HISTIOCYTOSIS HAEMATOPHAGIC [None]
  - HYPOTHERMIA [None]
  - HYPOXIA [None]
  - INFLAMMATION OF LACRIMAL PASSAGE [None]
  - ISCHAEMIA [None]
  - KERATITIS [None]
  - LEUKOPENIA [None]
  - MALAISE [None]
  - MUCOSAL INFLAMMATION [None]
  - MULTI-ORGAN FAILURE [None]
  - NO THERAPEUTIC RESPONSE [None]
  - OLIGURIA [None]
  - OTITIS MEDIA [None]
  - PATHOGEN RESISTANCE [None]
  - PLEURAL EFFUSION [None]
  - PSEUDOMONAS INFECTION [None]
  - RADIATION SKIN INJURY [None]
  - RENAL FAILURE [None]
  - RESPIRATORY DISTRESS [None]
  - RESPIRATORY FAILURE [None]
  - SEPSIS [None]
  - SERRATIA INFECTION [None]
  - SHOCK [None]
  - SKIN INFLAMMATION [None]
  - STAPHYLOCOCCAL INFECTION [None]
  - SYMBLEPHARON [None]
  - TOXIC EPIDERMAL NECROLYSIS [None]
  - TYMPANIC MEMBRANE PERFORATION [None]
  - ULCERATIVE KERATITIS [None]
  - WOUND SECRETION [None]
